FAERS Safety Report 25150018 (Version 2)
Quarter: 2025Q2

REPORT INFORMATION
  Report Type: Spontaneous
  Country: CN (occurrence: CN)
  Receive Date: 20250402
  Receipt Date: 20250410
  Transmission Date: 20250716
  Serious: Yes (Other)
  Sender: PFIZER
  Company Number: CN-PFIZER INC-PV202500038248

PATIENT
  Age: 34 Year
  Sex: Male
  Weight: 80 kg

DRUGS (7)
  1. IRINOTECAN HYDROCHLORIDE [Suspect]
     Active Substance: IRINOTECAN HYDROCHLORIDE
     Indication: Neoplasm malignant
     Dosage: 0.3 G, 1X/DAY (D1)
     Route: 041
     Dates: start: 20250315, end: 20250315
  2. IRINOTECAN HYDROCHLORIDE [Suspect]
     Active Substance: IRINOTECAN HYDROCHLORIDE
     Indication: Colon cancer
  3. RALTITREXED [Suspect]
     Active Substance: RALTITREXED
     Indication: Neoplasm malignant
     Dosage: 4 MG, 1X/DAY (D1)
     Route: 041
     Dates: start: 20250315, end: 20250315
  4. RALTITREXED [Suspect]
     Active Substance: RALTITREXED
     Indication: Colon cancer
  5. BEVACIZUMAB [Suspect]
     Active Substance: BEVACIZUMAB
     Indication: Neoplasm malignant
     Dosage: 400 MG, 1X/DAY (D0)
     Route: 041
     Dates: start: 20250314, end: 20250314
  6. BEVACIZUMAB [Suspect]
     Active Substance: BEVACIZUMAB
     Indication: Colon cancer
  7. NADROPARIN CALCIUM [Concomitant]
     Active Substance: NADROPARIN CALCIUM
     Indication: Thrombosis prophylaxis
     Dosage: 6150 IU, 2X/DAY
     Route: 058
     Dates: start: 20250310, end: 20250325

REACTIONS (1)
  - Venous thrombosis [Not Recovered/Not Resolved]

NARRATIVE: CASE EVENT DATE: 20250319
